FAERS Safety Report 19086941 (Version 1)
Quarter: 2021Q2

REPORT INFORMATION
  Report Type: Spontaneous
  Country: US (occurrence: US)
  Receive Date: 20210402
  Receipt Date: 20210402
  Transmission Date: 20210717
  Serious: No
  Sender: FDA-Public Use
  Company Number: US-SUNOVION-2021SUN001060

PATIENT
  Age: 55 Year
  Sex: Female

DRUGS (1)
  1. LATUDA [Suspect]
     Active Substance: LURASIDONE HYDROCHLORIDE
     Dosage: 50 MG, QD 1+1/4 TABLET 40 MG
     Route: 048

REACTIONS (4)
  - Mental disorder [Unknown]
  - Wrong technique in product usage process [Unknown]
  - Nervousness [Unknown]
  - Anxiety [Unknown]
